FAERS Safety Report 7729737-3 (Version None)
Quarter: 2011Q3

REPORT INFORMATION
  Report Type: 
  Country: None (occurrence: None)
  Receive Date: 20110901
  Receipt Date: 20110901
  Transmission Date: 20111222
  Serious: Yes (Death)
  Sender: FDA-Public Use
  Company Number: None

PATIENT
  Age: 70 Year
  Sex: Male
  Weight: 100.6 kg

DRUGS (1)
  1. BUPROPION HCL [Suspect]
     Indication: DEPRESSION
     Dosage: 150 MG BID PO
     Route: 048
     Dates: start: 20110315, end: 20110407

REACTIONS (3)
  - GUN SHOT WOUND [None]
  - CHEST INJURY [None]
  - COMPLETED SUICIDE [None]
